FAERS Safety Report 9799446 (Version 1)
Quarter: 2014Q1

REPORT INFORMATION
  Report Type: Spontaneous
  Country: US (occurrence: None)
  Receive Date: 20140103
  Receipt Date: 20140103
  Transmission Date: 20141002
  Serious: Yes (Hospitalization)
  Sender: FDA-Public Use
  Company Number: None

PATIENT
  Age: 65 Year
  Sex: Female
  Weight: 49.8 kg

DRUGS (2)
  1. IFOSFAMIDE [Suspect]
  2. PACLITAXEL (TAXOL) [Suspect]

REACTIONS (17)
  - Asthenia [None]
  - Dysstasia [None]
  - Hypophagia [None]
  - Fluid intake reduced [None]
  - Hallucination [None]
  - Disorientation [None]
  - Paranoia [None]
  - Fear [None]
  - Atelectasis [None]
  - Lung infiltration [None]
  - Cerebral ischaemia [None]
  - Cyanopsia [None]
  - Pleural effusion [None]
  - Deep vein thrombosis [None]
  - Confusional state [None]
  - Decreased appetite [None]
  - Psychotic disorder [None]
